FAERS Safety Report 12341235 (Version 1)
Quarter: 2016Q2

REPORT INFORMATION
  Report Type: Spontaneous
  Country: US (occurrence: US)
  Receive Date: 20160506
  Receipt Date: 20160506
  Transmission Date: 20160815
  Serious: No
  Sender: FDA-Public Use
  Company Number: US-WARNER CHILCOTT, LLC-1051556

PATIENT
  Age: 95 Year
  Sex: Female

DRUGS (1)
  1. ACTONEL [Suspect]
     Active Substance: RISEDRONATE SODIUM
     Indication: OSTEOPOROSIS
     Route: 048
     Dates: start: 201505, end: 201506

REACTIONS (4)
  - Pain in jaw [Not Recovered/Not Resolved]
  - Dyskinesia [Recovered/Resolved]
  - Joint crepitation [Not Recovered/Not Resolved]
  - Mastication disorder [Not Recovered/Not Resolved]
